FAERS Safety Report 7679894-2 (Version None)
Quarter: 2011Q3

REPORT INFORMATION
  Report Type: 
  Country: None (occurrence: None)
  Receive Date: 20110812
  Receipt Date: 20110808
  Transmission Date: 20111222
  Serious: Yes (Death)
  Sender: FDA-Public Use
  Company Number: FR-PFIZER INC-2011182347

PATIENT
  Age: 66 Year
  Sex: Male

DRUGS (11)
  1. SANDOSTATIN [Suspect]
     Indication: CONSTIPATION
     Dosage: 300 UG, 1X/DAY
     Route: 042
     Dates: start: 20110719, end: 20110726
  2. ACUPAN [Concomitant]
     Dosage: UNK
     Dates: start: 20110620
  3. LYRICA [Suspect]
     Indication: NEURALGIA
     Dosage: 50 MG, 1X/DAY
     Route: 048
     Dates: start: 20110718, end: 20110721
  4. CIPROFLOXACIN [Concomitant]
     Dosage: UNK
     Dates: start: 20110718
  5. AMITRIPTYLINE HCL [Concomitant]
     Dosage: UNK
     Dates: start: 20110723
  6. SPASFON [Concomitant]
     Dosage: UNK
     Dates: start: 20110623
  7. METRONIDAZOLE [Concomitant]
     Dosage: UNK
     Dates: start: 20110621
  8. BACTRIM [Concomitant]
     Dosage: UNK
     Dates: start: 20110710
  9. ACETAMINOPHEN [Concomitant]
     Dosage: UNK
     Dates: start: 20110620
  10. IPILIMUMAB [Suspect]
     Indication: METASTATIC MALIGNANT MELANOMA
     Dosage: 3 MG/KG, UNK
     Route: 042
     Dates: start: 20110624, end: 20110726
  11. OXYCODONE HCL [Concomitant]
     Dosage: UNK
     Dates: start: 20110722

REACTIONS (5)
  - GENERAL PHYSICAL CONDITION ABNORMAL [None]
  - HEPATITIS CHOLESTATIC [None]
  - CYTOLYTIC HEPATITIS [None]
  - URTICARIA [None]
  - NEOPLASM MALIGNANT [None]
